FAERS Safety Report 4709530-6 (Version None)
Quarter: 2005Q3

REPORT INFORMATION
  Report Type: 
  Country: None (occurrence: None)
  Receive Date: 20050707
  Receipt Date: 20050628
  Transmission Date: 20060218
  Serious: Yes (Other)
  Sender: FDA-Public Use
  Company Number: 2005-06-2318

PATIENT
  Sex: Female

DRUGS (3)
  1. PEG-INTRON [Suspect]
     Indication: HEPATITIS C
     Dosage: SUBCUTANEOUS
     Route: 058
     Dates: start: 20050616
  2. RIBAVIRIN [Suspect]
     Indication: HEPATITIS C
     Dosage: ORAL
     Route: 048
     Dates: start: 20050616
  3. TRAMADOL HCL [Suspect]
     Indication: MIGRAINE

REACTIONS (6)
  - ABSCESS [None]
  - FEELING ABNORMAL [None]
  - NAUSEA [None]
  - SWELLING FACE [None]
  - TOOTH EROSION [None]
  - TOOTH FRACTURE [None]
